FAERS Safety Report 9782494 (Version 1)
Quarter: 2013Q4

REPORT INFORMATION
  Report Type: Spontaneous
  Country: US (occurrence: None)
  Receive Date: 20131223
  Receipt Date: 20131223
  Transmission Date: 20140711
  Serious: Yes (Hospitalization)
  Sender: FDA-Public Use
  Company Number: None

PATIENT
  Age: 62 Year
  Sex: Male
  Weight: 67.7 kg

DRUGS (3)
  1. CLINDAMYCIN [Suspect]
     Indication: CELLULITIS
     Route: 048
     Dates: start: 20130911, end: 20130915
  2. TRAMADOL [Suspect]
     Indication: PAIN
     Route: 048
     Dates: start: 20130911, end: 20130915
  3. TRAMADOL [Suspect]
     Indication: CELLULITIS
     Route: 048
     Dates: start: 20130911, end: 20130915

REACTIONS (7)
  - Myalgia [None]
  - Arthralgia [None]
  - Angioedema [None]
  - Rash erythematous [None]
  - Rash pruritic [None]
  - Hypersensitivity vasculitis [None]
  - Pain [None]
